FAERS Safety Report 12885936 (Version 1)
Quarter: 2016Q4

REPORT INFORMATION
  Report Type: Spontaneous
  Country: US (occurrence: US)
  Receive Date: 20161026
  Receipt Date: 20161026
  Transmission Date: 20170207
  Serious: Yes (Hospitalization)
  Sender: FDA-Public Use
  Company Number: None

PATIENT
  Age: 76 Year
  Sex: Female
  Weight: 65.2 kg

DRUGS (11)
  1. KCL [Concomitant]
     Active Substance: POTASSIUM CHLORIDE
  2. ASPIRIN. [Concomitant]
     Active Substance: ASPIRIN
  3. AMIODARONE [Suspect]
     Active Substance: AMIODARONE
     Indication: ATRIAL FIBRILLATION
     Route: 048
  4. ALDACTONE [Concomitant]
     Active Substance: SPIRONOLACTONE
  5. COLCHICINE. [Concomitant]
     Active Substance: COLCHICINE
  6. ZYLOPRIM [Concomitant]
     Active Substance: ALLOPURINOL
  7. WARFARIN [Concomitant]
     Active Substance: WARFARIN
  8. PRILOSEC [Concomitant]
     Active Substance: OMEPRAZOLE MAGNESIUM
  9. XANAX [Concomitant]
     Active Substance: ALPRAZOLAM
  10. VITD [Concomitant]
  11. METOPROLOL. [Suspect]
     Active Substance: METOPROLOL
     Indication: HYPERTENSION
     Dosage: 50MG Q MORNING PO
     Route: 048

REACTIONS (3)
  - Nodal arrhythmia [None]
  - Acute kidney injury [None]
  - Transaminases increased [None]

NARRATIVE: CASE EVENT DATE: 20150430
